FAERS Safety Report 5465677-0 (Version None)
Quarter: 2007Q3

REPORT INFORMATION
  Report Type: 
  Country: None (occurrence: None)
  Receive Date: 20070924
  Receipt Date: 20070911
  Transmission Date: 20080115
  Serious: Yes (Death)
  Sender: FDA-Public Use
  Company Number: PH-ROCHE-516657

PATIENT
  Age: 36 Year
  Sex: Female
  Weight: 65 kg

DRUGS (2)
  1. CAPECITABINE [Suspect]
     Dosage: REPORTED DOSE ILLEGIBLE, DOSE PER PROTOCOL; ON DAYS 1-14 OF EACH 21-DAY CYCLE
     Route: 048
     Dates: start: 20070711
  2. BLINDED BEVACIZUMAB [Suspect]
     Route: 042
     Dates: start: 20070711

REACTIONS (3)
  - CEREBRAL INFARCTION [None]
  - CEREBRAL ISCHAEMIA [None]
  - CEREBRAL THROMBOSIS [None]
